FAERS Safety Report 6688364-X (Version None)
Quarter: 2010Q2

REPORT INFORMATION
  Report Type: 
  Country: None (occurrence: None)
  Receive Date: 20100420
  Receipt Date: 20100409
  Transmission Date: 20101027
  Serious: Yes (Hospitalization, Other)
  Sender: FDA-Public Use
  Company Number: PHHO2010US05445

PATIENT
  Age: 51 Year
  Sex: Male

DRUGS (2)
  1. MYFORTIC [Suspect]
  2. PREDNISOLONE [Suspect]

REACTIONS (10)
  - BLADDER SPASM [None]
  - BLOOD PRESSURE ABNORMAL [None]
  - CHILLS [None]
  - ENTEROCOCCAL INFECTION [None]
  - FATIGUE [None]
  - PYREXIA [None]
  - RENAL FAILURE ACUTE [None]
  - TACHYCARDIA [None]
  - URINARY INCONTINENCE [None]
  - URINARY TRACT INFECTION [None]
